FAERS Safety Report 6365788-1 (Version None)
Quarter: 2009Q3

REPORT INFORMATION
  Report Type: 
  Country: None (occurrence: None)
  Receive Date: 20090919
  Receipt Date: 20090824
  Transmission Date: 20100115
  Serious: No
  Sender: FDA-Public Use
  Company Number: US-ABBOTT-09P-163-0593776-00

PATIENT
  Sex: Female

DRUGS (4)
  1. HUMIRA [Suspect]
     Indication: RHEUMATOID ARTHRITIS
     Route: 058
     Dates: start: 20090201, end: 20090601
  2. NITROGLYCERIN [Concomitant]
     Indication: CHEST PAIN
     Dosage: UNKNOWN
     Route: 060
     Dates: start: 20070101
  3. NITROGLYCERIN [Concomitant]
     Indication: DYSPNOEA
  4. NITROGLYCERIN [Concomitant]
     Indication: MYOCARDIAL INFARCTION

REACTIONS (3)
  - ARTHRALGIA [None]
  - BACK PAIN [None]
  - OEDEMA PERIPHERAL [None]
